FAERS Safety Report 9603820 (Version 1)
Quarter: 2013Q4

REPORT INFORMATION
  Report Type: Spontaneous
  Country: RO (occurrence: RO)
  Receive Date: 20131008
  Receipt Date: 20131008
  Transmission Date: 20140711
  Serious: Yes (Other)
  Sender: FDA-Public Use
  Company Number: RO-ROCHE-1285090

PATIENT
  Sex: 0

DRUGS (6)
  1. BEVACIZUMAB [Suspect]
     Indication: COLORECTAL CANCER
     Route: 065
  2. CAPECITABINE [Suspect]
     Indication: COLORECTAL CANCER
     Route: 065
  3. OXALIPLATIN [Suspect]
     Indication: COLORECTAL CANCER
     Route: 065
  4. IRINOTECAN [Suspect]
     Indication: COLORECTAL CANCER
     Route: 065
  5. FOLINIC ACID [Suspect]
     Indication: COLORECTAL CANCER
     Route: 065
  6. FLUOROURACIL [Suspect]
     Indication: COLORECTAL CANCER
     Route: 065

REACTIONS (4)
  - Intestinal perforation [Unknown]
  - Essential hypertension [Unknown]
  - Proteinuria [Unknown]
  - Haemorrhage [Unknown]
